FAERS Safety Report 24207599 (Version 2)
Quarter: 2024Q3

REPORT INFORMATION
  Report Type: Spontaneous
  Country: US (occurrence: US)
  Receive Date: 20240814
  Receipt Date: 20240820
  Transmission Date: 20241016
  Serious: No
  Sender: CHATTEM
  Company Number: US-OPELLA-2024OHG026685

PATIENT

DRUGS (1)
  1. XYZAL [Suspect]
     Active Substance: LEVOCETIRIZINE DIHYDROCHLORIDE
     Indication: Product used for unknown indication
     Dosage: TOOK A REGULAR DOSE, 1 PILL, OF ZYZAL OVER THE OVER THE COUNTER THIS MORNING AT AROUND 8 AM
     Route: 048
     Dates: start: 20240806

REACTIONS (4)
  - Somnolence [Unknown]
  - Impaired work ability [Unknown]
  - Gait inability [Unknown]
  - Impaired driving ability [Unknown]

NARRATIVE: CASE EVENT DATE: 20240806
